FAERS Safety Report 22329590 (Version 1)
Quarter: 2023Q2

REPORT INFORMATION
  Report Type: Other
  Country: FR (occurrence: FR)
  Receive Date: 20230517
  Receipt Date: 20230517
  Transmission Date: 20230722
  Serious: Yes (Hospitalization)
  Sender: FDA-Public Use
  Company Number: None

PATIENT

DRUGS (7)
  1. DULOXETINE [Suspect]
     Active Substance: DULOXETINE
     Indication: Diabetic neuropathy
     Dosage: 25 MILLIGRAM, QD
     Route: 048
     Dates: start: 20230321, end: 20230410
  2. IRBESARTAN [Interacting]
     Active Substance: IRBESARTAN
     Indication: Peripheral arterial occlusive disease
     Dosage: 300 MILLIGRAM, QD
     Route: 048
     Dates: start: 20220101, end: 20230420
  3. IRBESARTAN [Interacting]
     Active Substance: IRBESARTAN
     Indication: Hypertension
  4. LANSOPRAZOLE [Suspect]
     Active Substance: LANSOPRAZOLE
     Indication: Peptic ulcer
     Dosage: 30 MILLIGRAM, QD
     Route: 048
     Dates: start: 20220101
  5. LIPTRUZET [Suspect]
     Active Substance: ATORVASTATIN CALCIUM\EZETIMIBE
     Indication: Diabetic dyslipidaemia
     Dosage: UNK
     Route: 048
     Dates: start: 20220101
  6. BACTRIM [Interacting]
     Active Substance: SULFAMETHOXAZOLE\TRIMETHOPRIM
     Indication: Diabetic wound
     Dosage: 3 DOSAGE FORM, QD
     Route: 048
     Dates: start: 20230403, end: 20230424
  7. HYDROCHLOROTHIAZIDE [Suspect]
     Active Substance: HYDROCHLOROTHIAZIDE
     Indication: Hypertension
     Dosage: 25 MILLIGRAM, QD
     Route: 048
     Dates: start: 20220101, end: 20230410

REACTIONS (2)
  - Hyperkalaemia [Recovering/Resolving]
  - Hyponatraemia [Not Recovered/Not Resolved]

NARRATIVE: CASE EVENT DATE: 20230417
